FAERS Safety Report 7578176-7 (Version None)
Quarter: 2011Q2

REPORT INFORMATION
  Report Type: 
  Country: None (occurrence: None)
  Receive Date: 20110628
  Receipt Date: 20110607
  Transmission Date: 20111010
  Serious: Yes (Congenital Anomaly)
  Sender: FDA-Public Use
  Company Number: A0932984A

PATIENT
  Sex: Female

DRUGS (1)
  1. PAXIL [Suspect]
     Route: 064

REACTIONS (5)
  - ATRIAL SEPTAL DEFECT [None]
  - TRISOMY 21 [None]
  - CLEFT PALATE [None]
  - HYPOTHYROIDISM [None]
  - DRUG EXPOSURE DURING PREGNANCY [None]
